FAERS Safety Report 18272134 (Version 1)
Quarter: 2020Q3

REPORT INFORMATION
  Report Type: Spontaneous
  Country: US (occurrence: US)
  Receive Date: 20200916
  Receipt Date: 20200916
  Transmission Date: 20201103
  Serious: Yes (Other)
  Sender: FDA-Public Use
  Company Number: None

PATIENT
  Age: 64 Year
  Sex: Male

DRUGS (7)
  1. RIBAVIRIN. [Suspect]
     Active Substance: RIBAVIRIN
     Indication: HEPATITIS C
     Route: 048
     Dates: start: 20200602, end: 20200816
  2. METFORMIN 500MG [Concomitant]
     Active Substance: METFORMIN HYDROCHLORIDE
  3. METOPROLOL SUCCINATE 100MG ER [Concomitant]
  4. LISINOPRIL 40 MG [Concomitant]
     Active Substance: LISINOPRIL
  5. OMEPRAZOLE 40MG [Concomitant]
     Active Substance: OMEPRAZOLE
  6. VOSEVI [Suspect]
     Active Substance: SOFOSBUVIR\VELPATASVIR\VOXILAPREVIR
     Indication: HEPATITIS C
     Route: 048
     Dates: start: 20200602, end: 20200816
  7. AMLODIPINE/BENAZEPRIL 10/20MG [Concomitant]

REACTIONS (3)
  - Malaise [None]
  - Hepatic cancer [None]
  - Internal haemorrhage [None]

NARRATIVE: CASE EVENT DATE: 20200831
